FAERS Safety Report 6728007-X (Version None)
Quarter: 2010Q2

REPORT INFORMATION
  Report Type: 
  Country: None (occurrence: None)
  Receive Date: 20100512
  Receipt Date: 20100426
  Transmission Date: 20101027
  Serious: Yes (Other)
  Sender: FDA-Public Use
  Company Number: 233067J09USA

PATIENT
  Age: 55 Year
  Sex: Female

DRUGS (7)
  1. REBIF [Suspect]
     Indication: MULTIPLE SCLEROSIS
     Dosage: 44 MCG, 3 IN 1 WK, SUBCUTANEOUS
     Route: 058
     Dates: start: 20090227, end: 20100401
  2. REBIF [Suspect]
     Indication: MULTIPLE SCLEROSIS
     Dosage: 44 MCG, 3 IN 1 WK, SUBCUTANEOUS
     Route: 058
     Dates: start: 20100401
  3. UNSPECIFIED STEROIDS (CORTICOSTEROIDS) [Concomitant]
  4. NORVASC [Concomitant]
  5. HYDROCHLOROTHIAZIDE [Concomitant]
  6. SYNTHROID [Concomitant]
  7. MIRAPEX [Concomitant]

REACTIONS (4)
  - BACK PAIN [None]
  - CHEST PAIN [None]
  - CHOLELITHIASIS [None]
  - UTERINE LEIOMYOMA [None]
